FAERS Safety Report 12993371 (Version 1)
Quarter: 2016Q4

REPORT INFORMATION
  Report Type: Spontaneous
  Country: US (occurrence: US)
  Receive Date: 20161201
  Receipt Date: 20161201
  Transmission Date: 20170207
  Serious: Yes (Hospitalization)
  Sender: FDA-Public Use
  Company Number: None

PATIENT
  Age: 68 Year
  Sex: Male
  Weight: 76.5 kg

DRUGS (1)
  1. BACLOFEN. [Suspect]
     Active Substance: BACLOFEN
     Indication: PAIN
     Route: 048
     Dates: start: 20160908, end: 20160922

REACTIONS (6)
  - Abnormal behaviour [None]
  - Sedation [None]
  - Disturbance in social behaviour [None]
  - Hemiparesis [None]
  - Facial paralysis [None]
  - Confusional state [None]

NARRATIVE: CASE EVENT DATE: 20160922
